FAERS Safety Report 8288903-1 (Version None)
Quarter: 2012Q2

REPORT INFORMATION
  Report Type: 
  Country: None (occurrence: None)
  Receive Date: 20120412
  Receipt Date: 20120327
  Transmission Date: 20120825
  Serious: Yes (Hospitalization)
  Sender: FDA-Public Use
  Company Number: 2012FR0126

PATIENT
  Age: 8 Year
  Sex: Male

DRUGS (1)
  1. ORFADIN [Suspect]
     Indication: TYROSINAEMIA

REACTIONS (2)
  - LIVER TRANSPLANT [None]
  - HEPATIC NEOPLASM MALIGNANT [None]
